FAERS Safety Report 4794534-8 (Version None)
Quarter: 2005Q4

REPORT INFORMATION
  Report Type: 
  Country: None (occurrence: None)
  Receive Date: 20051011
  Receipt Date: 20051003
  Transmission Date: 20060501
  Serious: Yes (Other)
  Sender: FDA-Public Use
  Company Number: PHRM2005FR02631

PATIENT
  Age: 64 Year
  Sex: Male

DRUGS (1)
  1. ZOMETA [Suspect]
     Indication: NEOPLASM PROSTATE
     Dosage: 4 MG, QMO
     Route: 042

REACTIONS (2)
  - MUCOSAL ULCERATION [None]
  - OSTEONECROSIS [None]
